FAERS Safety Report 7762452-9 (Version None)
Quarter: 2011Q3

REPORT INFORMATION
  Report Type: 
  Country: None (occurrence: None)
  Receive Date: 20110920
  Receipt Date: 20110914
  Transmission Date: 20111222
  Serious: Yes (Other)
  Sender: FDA-Public Use
  Company Number: JP-SANOFI-AVENTIS-2011SA060338

PATIENT

DRUGS (1)
  1. PLAVIX [Suspect]
     Dosage: INTERNAL

REACTIONS (2)
  - ILEUS [None]
  - HAEMORRHAGE [None]
